FAERS Safety Report 23266183 (Version 1)
Quarter: 2023Q4

REPORT INFORMATION
  Report Type: Spontaneous
  Country: US (occurrence: US)
  Receive Date: 20231206
  Receipt Date: 20231206
  Transmission Date: 20240110
  Serious: Yes (Other)
  Sender: FDA-Public Use
  Company Number: US-HALOZYME THERAPEUTICS, INC.-2023-US-TX -05400

PATIENT

DRUGS (2)
  1. XYOSTED [Suspect]
     Active Substance: TESTOSTERONE ENANTHATE
     Indication: Blood testosterone decreased
     Dosage: STARTED AROUND 12 MONTHS AGO, MAINTAINED 75 MG FOR 10 MONTHS
     Route: 058
     Dates: start: 2022
  2. XYOSTED [Suspect]
     Active Substance: TESTOSTERONE ENANTHATE
     Dosage: PATIENT HAS BEEN ON 100 MG FOR THE PAST TWO MONTHS
     Route: 058
     Dates: start: 2023

REACTIONS (4)
  - Thrombosis [Not Recovered/Not Resolved]
  - Myocardial infarction [None]
  - Blood pressure increased [None]
  - Myocardial injury [None]

NARRATIVE: CASE EVENT DATE: 20220101
